FAERS Safety Report 17008090 (Version 1)
Quarter: 2019Q4

REPORT INFORMATION
  Report Type: Spontaneous
  Country: SE (occurrence: SE)
  Receive Date: 20191108
  Receipt Date: 20191108
  Transmission Date: 20200122
  Serious: Yes (Hospitalization, Other)
  Sender: FDA-Public Use
  Company Number: SE-ORION CORPORATION ORION PHARMA-19_00007386

PATIENT
  Age: 74 Year
  Sex: Female

DRUGS (4)
  1. METHOTREXATE (TRADE NAME UNKNOWN) [Suspect]
     Active Substance: METHOTREXATE
     Indication: NEURODERMATITIS
     Route: 065
     Dates: end: 20190927
  2. ELIQUIS [Concomitant]
     Active Substance: APIXABAN
     Route: 065
  3. QUETIAPINE. [Concomitant]
     Active Substance: QUETIAPINE
     Route: 065
  4. FOLACIN [Concomitant]
     Route: 065

REACTIONS (4)
  - Thrombocytopenia [Unknown]
  - Product use in unapproved indication [Unknown]
  - Blood folate decreased [Unknown]
  - Anaemia [Unknown]

NARRATIVE: CASE EVENT DATE: 20190927
